FAERS Safety Report 4668182-4 (Version None)
Quarter: 2005Q2

REPORT INFORMATION
  Report Type: 
  Country: None (occurrence: None)
  Receive Date: 20050523
  Receipt Date: 20050204
  Transmission Date: 20051028
  Serious: Yes (Other)
  Sender: FDA-Public Use
  Company Number: PHEH2005US01648

PATIENT
  Age: 60 Year
  Sex: Male
  Weight: 77 kg

DRUGS (4)
  1. ZOMETA [Suspect]
     Indication: METASTASES TO BONE
     Dosage: 4MG QMO
     Dates: start: 20030130, end: 20041209
  2. ATENOLOL TABLETS USP (NGX) [Concomitant]
  3. OXYCONTIN [Concomitant]
     Dosage: 20 UNK
  4. OXYFAST [Concomitant]

REACTIONS (1)
  - OSTEONECROSIS [None]
